FAERS Safety Report 4769015-8 (Version None)
Quarter: 2005Q3

REPORT INFORMATION
  Report Type: 
  Country: None (occurrence: None)
  Receive Date: 20050909
  Receipt Date: 20050909
  Transmission Date: 20060218
  Serious: Yes (Hospitalization, Other)
  Sender: FDA-Public Use
  Company Number: None

PATIENT
  Sex: Male
  Weight: 66 kg

DRUGS (5)
  1. CARBOPLATIN [Suspect]
     Indication: NON-SMALL CELL LUNG CANCER
     Dosage: SEE IMAGE
     Dates: start: 20050516, end: 20050627
  2. CARBOPLATIN [Suspect]
     Indication: NON-SMALL CELL LUNG CANCER
     Dosage: SEE IMAGE
     Dates: start: 20050818
  3. PACLITAXEL [Suspect]
     Dosage: SEE IMAGE
     Dates: start: 20050516, end: 20050627
  4. PACLITAXEL [Suspect]
     Dosage: SEE IMAGE
     Dates: start: 20050818
  5. RADIATION [Suspect]
     Dosage: SEE IMAGE
     Dates: start: 20050818

REACTIONS (1)
  - ACUTE RESPIRATORY DISTRESS SYNDROME [None]
